FAERS Safety Report 10511026 (Version 1)
Quarter: 2014Q4

REPORT INFORMATION
  Report Type: Spontaneous
  Country: US (occurrence: US)
  Receive Date: 20141010
  Receipt Date: 20141010
  Transmission Date: 20150528
  Serious: No
  Sender: FDA-Public Use
  Company Number: US-PFIZER INC-2014276787

PATIENT
  Age: 73 Year
  Sex: Female
  Weight: 61.22 kg

DRUGS (1)
  1. CELEBREX [Suspect]
     Active Substance: CELECOXIB
     Dosage: UNK

REACTIONS (6)
  - Skin papilloma [Recovered/Resolved]
  - Swelling [Recovered/Resolved]
  - Burning sensation [Recovered/Resolved]
  - Drug hypersensitivity [Unknown]
  - Erythema [Recovered/Resolved]
  - Pruritus [Recovered/Resolved]

NARRATIVE: CASE EVENT DATE: 20141002
